FAERS Safety Report 5242461-4 (Version None)
Quarter: 2007Q1

REPORT INFORMATION
  Report Type: 
  Country: None (occurrence: None)
  Receive Date: 20070214
  Receipt Date: 20070129
  Transmission Date: 20070707
  Serious: Yes (Other)
  Sender: FDA-Public Use
  Company Number: 2005S1005862

PATIENT
  Age: 40 Year
  Sex: Male

DRUGS (8)
  1. LEXAPRO [Suspect]
     Indication: OBSESSIVE-COMPULSIVE DISORDER
     Dosage: 30 MG; DAILY; ORAL
     Route: 048
     Dates: start: 20030401, end: 20050301
  2. LEXAPRO [Suspect]
     Indication: OBSESSIVE-COMPULSIVE DISORDER
     Dosage: 15 MG; DAILY; ORAL
     Route: 048
     Dates: start: 20050301, end: 20050101
  3. LEXAPRO [Suspect]
     Indication: OBSESSIVE-COMPULSIVE DISORDER
     Dosage: 10 MG; DAILY; ORAL
     Route: 048
     Dates: start: 20050101
  4. LEXAPRO [Suspect]
     Indication: OBSESSIVE-COMPULSIVE DISORDER
     Dosage: 5 MG; DAILY; ORAL
     Route: 048
  5. CLOZAPINE [Suspect]
     Indication: THINKING ABNORMAL
     Dosage: 50 MG; DAILY; ORAL
     Route: 048
     Dates: start: 20050301, end: 20050709
  6. CLOZAPINE [Suspect]
     Indication: THINKING ABNORMAL
     Dosage: SEE IMAGE
     Route: 048
     Dates: start: 20030401, end: 20050301
  7. CLOZAPINE [Suspect]
     Indication: THINKING ABNORMAL
     Dosage: SEE IMAGE
     Route: 048
     Dates: start: 20050301
  8. LORAZEPAM [Concomitant]

REACTIONS (1)
  - TARDIVE DYSKINESIA [None]
